FAERS Safety Report 9915333 (Version 1)
Quarter: 2014Q1

REPORT INFORMATION
  Report Type: Report from Study
  Country: NZ (occurrence: NZ)
  Receive Date: 20140221
  Receipt Date: 20140221
  Transmission Date: 20141002
  Serious: Yes (Other)
  Sender: FDA-Public Use
  Company Number: NZ-ROCHE-1350171

PATIENT
  Sex: 0

DRUGS (3)
  1. RIBAVIRIN [Suspect]
     Indication: HEPATITIS C
     Route: 065
  2. SOFOSBUVIR [Suspect]
     Indication: HEPATITIS C
     Route: 048
  3. LEDIPASVIR [Suspect]
     Indication: HEPATITIS C
     Route: 048

REACTIONS (3)
  - Haemoglobin decreased [Unknown]
  - Haematuria [Unknown]
  - Prothrombin time prolonged [Unknown]
